FAERS Safety Report 4964825-6 (Version None)
Quarter: 2006Q2

REPORT INFORMATION
  Report Type: 
  Country: None (occurrence: None)
  Receive Date: 20060403
  Receipt Date: 20060320
  Transmission Date: 20061013
  Serious: Yes (Death, Hospitalization)
  Sender: FDA-Public Use
  Company Number: B0417553A

PATIENT
  Age: 53 Year
  Sex: Male

DRUGS (1)
  1. EPIVIR [Suspect]
     Indication: HEPATITIS B
     Dates: start: 20010601, end: 20011001

REACTIONS (7)
  - ANTI-HBS ANTIBODY POSITIVE [None]
  - ENCEPHALOPATHY [None]
  - HBV DNA INCREASED [None]
  - HEPATIC CIRRHOSIS [None]
  - HEPATIC FAILURE [None]
  - TREATMENT NONCOMPLIANCE [None]
  - VIRAL MUTATION IDENTIFIED [None]
